FAERS Safety Report 5383157-8 (Version None)
Quarter: 2007Q3

REPORT INFORMATION
  Report Type: 
  Country: None (occurrence: None)
  Receive Date: 20070710
  Receipt Date: 20070627
  Transmission Date: 20080115
  Serious: Yes (Hospitalization)
  Sender: FDA-Public Use
  Company Number: US-ELI_LILLY_AND_COMPANY-US200706006345

PATIENT
  Age: 73 Year
  Sex: Female
  Weight: 55.328 kg

DRUGS (3)
  1. HUMALOG [Suspect]
     Dosage: 5 U, EACH MORNING
     Dates: start: 20000101
  2. HUMALOG [Suspect]
     Dosage: 7 U, 2/D
     Dates: start: 20000101
  3. LANTUS [Concomitant]
     Indication: DIABETES MELLITUS
     Dosage: 14 U, EACH EVENING
     Dates: start: 20050101

REACTIONS (5)
  - ANGER [None]
  - BLOOD GLUCOSE INCREASED [None]
  - COMA [None]
  - FRUSTRATION [None]
  - VESSEL PUNCTURE SITE HAEMATOMA [None]
